FAERS Safety Report 12204040 (Version 2)
Quarter: 2016Q2

REPORT INFORMATION
  Report Type: Spontaneous
  Country: US (occurrence: US)
  Receive Date: 20160323
  Receipt Date: 20160518
  Transmission Date: 20160815
  Serious: No
  Sender: FDA-Public Use
  Company Number: US-PFIZER INC-2016123503

PATIENT
  Age: 61 Year
  Sex: Female
  Weight: 50 kg

DRUGS (2)
  1. CALAN SR [Suspect]
     Active Substance: VERAPAMIL HYDROCHLORIDE
     Indication: ATRIAL FIBRILLATION
     Dosage: 240 MG IN MORNING AND 120 MG AT BED TIME)
     Route: 048
  2. CALAN [Suspect]
     Active Substance: VERAPAMIL HYDROCHLORIDE
     Dosage: UNK

REACTIONS (7)
  - Eating disorder [Unknown]
  - Intentional product use issue [Unknown]
  - Blood parathyroid hormone decreased [Unknown]
  - Malaise [Unknown]
  - Urine calcium increased [Unknown]
  - Blood parathyroid hormone increased [Not Recovered/Not Resolved]
  - Vitamin D decreased [Unknown]
